FAERS Safety Report 10484142 (Version 1)
Quarter: 2014Q3

REPORT INFORMATION
  Report Type: Spontaneous
  Country: US (occurrence: None)
  Receive Date: 20140926
  Receipt Date: 20140926
  Transmission Date: 20150326
  Serious: Yes (Hospitalization, Other)
  Sender: FDA-Public Use
  Company Number: 2007S1006582

PATIENT
  Age: 73 Year
  Sex: Female

DRUGS (9)
  1. GLUCOPHAGE [Concomitant]
     Active Substance: METFORMIN HYDROCHLORIDE
  2. GOLYTELY [Suspect]
     Active Substance: POLYETHYLENE GLYCOL 3350\POTASSIUM CHLORIDE\SODIUM BICARBONATE\SODIUM CHLORIDE\SODIUM SULFATE ANHYDROUS
     Indication: COLONOSCOPY
     Route: 048
     Dates: start: 20050425
  3. METOPROLOL (METOPROLOL) [Concomitant]
     Active Substance: METOPROLOL
  4. PHOSPHO-SODA [Suspect]
     Active Substance: SODIUM PHOSPHATE, DIBASIC\SODIUM PHOSPHATE, MONOBASIC
     Indication: COLONOSCOPY
     Route: 048
     Dates: start: 20050424
  5. LIPITOR [Concomitant]
     Active Substance: ATORVASTATIN CALCIUM
  6. ZESTRIL (LISINOPRIL) [Concomitant]
  7. SYNTHROID [Concomitant]
     Active Substance: LEVOTHYROXINE SODIUM
  8. INSULIN (INSULIN) [Concomitant]
     Active Substance: INSULIN NOS
  9. HYDROCHLOROTHIAZIDE (HYDROCHLOROTHIAZIDE) [Concomitant]
     Active Substance: HYDROCHLOROTHIAZIDE

REACTIONS (19)
  - Fatigue [None]
  - Metabolic acidosis [None]
  - Nephrosclerosis [None]
  - Urinary tract infection [None]
  - Diarrhoea [None]
  - Nausea [None]
  - Haemodialysis [None]
  - Hyperlipidaemia [None]
  - Toxicity to various agents [None]
  - Constipation [None]
  - Hypovolaemia [None]
  - Hypotension [None]
  - Staphylococcal sepsis [None]
  - Abdominal pain [None]
  - Hypoxia [None]
  - Renal failure acute [None]
  - Hyperphosphataemia [None]
  - Renal tubular necrosis [None]
  - Syncope [None]

NARRATIVE: CASE EVENT DATE: 20050430
